FAERS Safety Report 7989614-X (Version None)
Quarter: 2011Q4

REPORT INFORMATION
  Report Type: 
  Country: None (occurrence: None)
  Receive Date: 20111215
  Receipt Date: 20111202
  Transmission Date: 20120403
  Serious: Yes (Other)
  Sender: FDA-Public Use
  Company Number: TPA2011A08168

PATIENT
  Age: 7 Decade
  Sex: Female

DRUGS (1)
  1. ACTOPLUS MET [Suspect]
     Indication: TYPE 2 DIABETES MELLITUS
     Dosage: 15/500

REACTIONS (2)
  - RENAL CELL CARCINOMA [None]
  - BLADDER CANCER [None]
